FAERS Safety Report 7214727-X (Version None)
Quarter: 2011Q1

REPORT INFORMATION
  Report Type: 
  Country: None (occurrence: None)
  Receive Date: 20110107
  Receipt Date: 20100104
  Transmission Date: 20110831
  Serious: No
  Sender: FDA-Public Use
  Company Number: A0837398A

PATIENT
  Age: 70 Year
  Sex: Female

DRUGS (3)
  1. LOVAZA [Suspect]
     Indication: BLOOD CHOLESTEROL INCREASED
     Dosage: 1G TWICE PER DAY
     Route: 048
     Dates: start: 20091201
  2. LEXAPRO [Concomitant]
  3. CRESTOR [Concomitant]

REACTIONS (1)
  - WEIGHT LOSS POOR [None]
